FAERS Safety Report 15787396 (Version 5)
Quarter: 2019Q2

REPORT INFORMATION
  Report Type: Report from Study
  Country: AT (occurrence: AT)
  Receive Date: 20190103
  Receipt Date: 20190503
  Transmission Date: 20190711
  Serious: Yes (Hospitalization)
  Sender: FDA-Public Use
  Company Number: AT-CELGENEUS-AUT-20181108868

PATIENT
  Age: 76 Year
  Sex: Male
  Weight: 68 kg

DRUGS (17)
  1. ABRAXANE [Suspect]
     Active Substance: PACLITAXEL
     Indication: PANCREATIC CARCINOMA
     Dosage: 184 MILLIGRAM/SQ. METER
     Route: 041
     Dates: start: 20180809
  2. KREON [Concomitant]
     Active Substance: PANCRELIPASE
     Indication: PANCREATIC FAILURE
     Route: 065
  3. ABRAXANE [Suspect]
     Active Substance: PACLITAXEL
     Dosage: 184 MILLIGRAM/SQ. METER
     Route: 041
     Dates: start: 20181004
  4. GEMCITABINE [Suspect]
     Active Substance: GEMCITABINE\GEMCITABINE HYDROCHLORIDE
     Indication: PANCREATIC CARCINOMA
     Dosage: 1843 MILLIGRAM/SQ. METER
     Route: 041
     Dates: start: 20180809
  5. GEMCITABINE [Suspect]
     Active Substance: GEMCITABINE\GEMCITABINE HYDROCHLORIDE
     Route: 065
     Dates: start: 20190117
  6. NEXIUM [Concomitant]
     Active Substance: ESOMEPRAZOLE MAGNESIUM
     Indication: PROPHYLAXIS
     Route: 065
  7. PASPERTIN [Concomitant]
     Indication: NAUSEA
     Dosage: AS NEEDED
     Route: 065
     Dates: start: 20180809
  8. GEMCITABINE [Suspect]
     Active Substance: GEMCITABINE\GEMCITABINE HYDROCHLORIDE
     Route: 065
     Dates: start: 201704, end: 201709
  9. DAFLON [Concomitant]
     Indication: OEDEMA
     Route: 065
     Dates: start: 20181004
  10. ABRAXANE [Suspect]
     Active Substance: PACLITAXEL
     Dosage: 184 MILLIGRAM/SQ. METER
     Route: 041
     Dates: start: 20180906
  11. GEMCITABINE [Suspect]
     Active Substance: GEMCITABINE\GEMCITABINE HYDROCHLORIDE
     Dosage: 1843 MILLIGRAM/SQ. METER
     Route: 041
     Dates: start: 20180906
  12. GEMCITABINE [Suspect]
     Active Substance: GEMCITABINE\GEMCITABINE HYDROCHLORIDE
     Dosage: WEEK 1: 1865 MG/ME2?WEEK 3: 1793 MG/ME2
     Route: 041
     Dates: start: 20181105
  13. ABRAXANE [Suspect]
     Active Substance: PACLITAXEL
     Dosage: WEEK 1: 183 MILLIGRAM/SQ. METER?WEEK 3: 178 MG/ME2
     Route: 041
     Dates: start: 20181105
  14. ABRAXANE [Suspect]
     Active Substance: PACLITAXEL
     Dosage: WEEK 1: 181 MILLIGRAM/SQ. METER?WEEK 3: 135 MG/ME2
     Route: 041
     Dates: start: 20181211
  15. ABRAXANE [Suspect]
     Active Substance: PACLITAXEL
     Route: 041
     Dates: start: 20190117
  16. GEMCITABINE [Suspect]
     Active Substance: GEMCITABINE\GEMCITABINE HYDROCHLORIDE
     Dosage: 1843 MILLIGRAM/SQ. METER
     Route: 041
     Dates: start: 20181004
  17. GEMCITABINE [Suspect]
     Active Substance: GEMCITABINE\GEMCITABINE HYDROCHLORIDE
     Dosage: WEEK 1: 1810 MG/ME2?WEEK 3: 1347 MG/ME2
     Route: 065
     Dates: start: 20181211

REACTIONS (12)
  - Melaena [Recovered/Resolved]
  - Polyneuropathy [Recovered/Resolved]
  - Flatulence [Recovered/Resolved]
  - Diarrhoea [Recovered/Resolved]
  - Oedema peripheral [Not Recovered/Not Resolved]
  - Oedema peripheral [Recovered/Resolved]
  - Diarrhoea [Recovered/Resolved]
  - Haematemesis [Recovered/Resolved]
  - Thrombocytopenia [Recovered/Resolved]
  - Anaemia [Not Recovered/Not Resolved]
  - Dehydration [Recovered/Resolved]
  - Paraesthesia [Recovered/Resolved]

NARRATIVE: CASE EVENT DATE: 20180816
